FAERS Safety Report 24129914 (Version 1)
Quarter: 2024Q3

REPORT INFORMATION
  Report Type: Spontaneous
  Country: CA (occurrence: CA)
  Receive Date: 20240724
  Receipt Date: 20240724
  Transmission Date: 20241016
  Serious: No
  Sender: Waylis
  Company Number: CA-WT-2024-075111

PATIENT
  Age: 75 Year
  Sex: Male

DRUGS (1)
  1. AVODART [Suspect]
     Active Substance: DUTASTERIDE
     Route: 065

REACTIONS (1)
  - Product residue present [Unknown]
